FAERS Safety Report 18232037 (Version 2)
Quarter: 2022Q2

REPORT INFORMATION
  Report Type: Spontaneous
  Country: US (occurrence: US)
  Receive Date: 20200904
  Receipt Date: 20220509
  Transmission Date: 20220721
  Serious: Yes (Other)
  Sender: FDA-Public Use
  Company Number: US-009507513-2009USA000065

PATIENT
  Sex: Female

DRUGS (2)
  1. KEYTRUDA [Suspect]
     Active Substance: PEMBROLIZUMAB
     Indication: Hereditary non-polyposis colorectal cancer syndrome
     Dosage: UNK
     Route: 042
     Dates: start: 201608, end: 201806
  2. KEYTRUDA [Suspect]
     Active Substance: PEMBROLIZUMAB
     Indication: Small intestine carcinoma

REACTIONS (5)
  - Arthritis [Unknown]
  - Neuropathy peripheral [Unknown]
  - Colitis [Unknown]
  - Urticaria [Unknown]
  - Product use in unapproved indication [Unknown]
